FAERS Safety Report 8141932-0 (Version None)
Quarter: 2012Q1

REPORT INFORMATION
  Report Type: 
  Country: None (occurrence: None)
  Receive Date: 20120216
  Receipt Date: 20120213
  Transmission Date: 20120608
  Serious: Yes (Hospitalization, Other)
  Sender: FDA-Public Use
  Company Number: US-VIIV HEALTHCARE LIMITED-A0965954A

PATIENT
  Age: 52 Year
  Sex: Male

DRUGS (8)
  1. EPZICOM [Suspect]
     Indication: HIV INFECTION
     Dosage: 1TAB PER DAY
     Route: 048
  2. ASPIRIN [Concomitant]
  3. LISINOPRIL [Concomitant]
  4. TENOFOVIR [Suspect]
     Indication: HIV INFECTION
     Route: 065
  5. ATAZANAVIR [Suspect]
     Indication: HIV INFECTION
     Route: 065
  6. RITONAVIR [Suspect]
     Indication: HIV INFECTION
     Route: 065
  7. COREG [Concomitant]
  8. METFORMIN HCL [Concomitant]

REACTIONS (5)
  - NAUSEA [None]
  - ABDOMINAL PAIN [None]
  - LIPASE ABNORMAL [None]
  - VOMITING [None]
  - PANCREATITIS [None]
